FAERS Safety Report 9580663 (Version 2)
Quarter: 2014Q1

REPORT INFORMATION
  Report Type: Spontaneous
  Country: GB (occurrence: GB)
  Receive Date: 20131002
  Receipt Date: 20140127
  Transmission Date: 20141002
  Serious: Yes (Death, Hospitalization, Other)
  Sender: FDA-Public Use
  Company Number: GB-COVIDIEN/TYCO HEALTHCARE/MALLINCKRODT-T201304465

PATIENT
  Age: 17 Year
  Sex: Male
  Weight: 41 kg

DRUGS (15)
  1. OPTIRAY [Suspect]
     Indication: COMPUTERISED TOMOGRAM
     Dosage: 75 ML, SINGLE
     Route: 042
     Dates: start: 20130331, end: 20130331
  2. BUTRANS                            /00444001/ [Concomitant]
     Indication: PAIN
     Dosage: 10 MG, UNK
  3. CYCLIZINE [Concomitant]
     Indication: ANTIEMETIC SUPPORTIVE CARE
     Dosage: 5 MG, UNK
     Route: 042
  4. FERROUS FUMARATE [Concomitant]
     Dosage: 200 MG, UNK
     Route: 048
     Dates: start: 20130327
  5. GABAPENTIN [Concomitant]
     Indication: PAIN
     Dosage: 200 MG, UNK
  6. LANSOPRAZOLE [Concomitant]
     Dosage: 30 MG, UNK
     Route: 048
     Dates: start: 20130327
  7. NYSTATIN [Concomitant]
     Indication: ORAL CANDIDIASIS
     Dosage: 1 ML, UNK
     Route: 048
  8. OMEPRAZOLE [Concomitant]
     Dosage: 40 MG, UNK
     Route: 048
     Dates: end: 20130325
  9. PANTOPRAZOLE [Concomitant]
     Dosage: 40 MG, UNK
     Route: 042
     Dates: end: 20130325
  10. PARACETAMOL [Concomitant]
     Indication: PAIN
     Dosage: UNK
     Route: 042
  11. PARACETAMOL [Concomitant]
     Dosage: UNK
     Route: 048
  12. PERINDOPRIL [Concomitant]
     Indication: HYPERTENSION
     Dosage: 2 MG, UNK
     Route: 048
  13. PHOSPHATE SANDOZ [Concomitant]
     Dosage: 500 MG, UNK
  14. SANDO K                            /00031402/ [Concomitant]
     Dosage: UNK
     Route: 048
     Dates: start: 20130327, end: 20130329
  15. TAZOCIN [Concomitant]
     Dosage: 4.5 MG, UNK
     Route: 042
     Dates: start: 20130328

REACTIONS (3)
  - Cardiac failure [Fatal]
  - Cardiac arrest [Fatal]
  - Pleural effusion [Unknown]
